FAERS Safety Report 6488762-3 (Version None)
Quarter: 2009Q4

REPORT INFORMATION
  Report Type: 
  Country: None (occurrence: None)
  Receive Date: 20091210
  Receipt Date: 20091203
  Transmission Date: 20100525
  Serious: No
  Sender: FDA-Public Use
  Company Number: US-B.I. PHARMACEUTICALS,INC./RIDGEFIELD-2009-BP-13937BP

PATIENT
  Sex: Female

DRUGS (3)
  1. MICARDIS [Suspect]
     Indication: HYPERTENSION
     Dosage: 40 MG
     Route: 048
     Dates: start: 20091116
  2. MICARDIS [Suspect]
     Dosage: 40 MG
     Route: 048
     Dates: start: 20091023, end: 20091107
  3. WELLCHOL [Suspect]
     Indication: BLOOD CHOLESTEROL INCREASED
     Route: 048
     Dates: start: 20091023, end: 20091107

REACTIONS (3)
  - COLITIS ULCERATIVE [None]
  - MUSCLE SPASMS [None]
  - MUSCULOSKELETAL PAIN [None]
